FAERS Safety Report 21856274 (Version 2)
Quarter: 2023Q1

REPORT INFORMATION
  Report Type: Report from Study
  Country: US (occurrence: US)
  Receive Date: 20230112
  Receipt Date: 20230313
  Transmission Date: 20230417
  Serious: No
  Sender: FDA-Public Use
  Company Number: US-ABBVIE-4234478

PATIENT
  Age: 39 Year
  Sex: Female

DRUGS (2)
  1. SKYRIZI [Suspect]
     Active Substance: RISANKIZUMAB-RZAA
     Indication: Psoriasis
     Dosage: WEEK 0, ALL EVENT ONSET 2022
     Route: 058
     Dates: start: 20221123
  2. SKYRIZI [Suspect]
     Active Substance: RISANKIZUMAB-RZAA
     Route: 058
     Dates: start: 20221221

REACTIONS (4)
  - Influenza [Unknown]
  - Vision blurred [Unknown]
  - Psoriasis [Unknown]
  - Erythema [Unknown]

NARRATIVE: CASE EVENT DATE: 20221201
